FAERS Safety Report 15645545 (Version 1)
Quarter: 2018Q4

REPORT INFORMATION
  Report Type: Spontaneous
  Country: US (occurrence: US)
  Receive Date: 20181121
  Receipt Date: 20181121
  Transmission Date: 20190205
  Serious: Yes (Other)
  Sender: FDA-Public Use
  Company Number: US-PFIZER INC-2018477114

PATIENT
  Sex: Male

DRUGS (1)
  1. VENLAFAXINE HCL [Suspect]
     Active Substance: VENLAFAXINE HYDROCHLORIDE
     Dosage: 37.5 MG, UNK (37.5 MG/QUANTITY - 30/DAYS SUPPLY - 30)

REACTIONS (4)
  - Drug ineffective [Unknown]
  - Panic attack [Unknown]
  - Suicidal ideation [Unknown]
  - Palpitations [Unknown]
